FAERS Safety Report 13785543 (Version 1)
Quarter: 2017Q3

REPORT INFORMATION
  Report Type: Spontaneous
  Country: US (occurrence: US)
  Receive Date: 20170724
  Receipt Date: 20170724
  Transmission Date: 20171127
  Serious: Yes (Other)
  Sender: FDA-Public Use
  Company Number: None

PATIENT
  Age: 37 Year
  Sex: Female
  Weight: 78.75 kg

DRUGS (13)
  1. ALBUTEROL INHALER [Concomitant]
     Active Substance: ALBUTEROL
  2. CINNAMON. [Concomitant]
     Active Substance: CINNAMON
  3. ENTYVIO [Suspect]
     Active Substance: VEDOLIZUMAB
     Indication: CROHN^S DISEASE
     Dosage: ?          OTHER FREQUENCY:ONCE EVERY 8 WEEKS;INTRAVENOUS (NOT OTHERWISE SPECIFIED) ?
     Route: 042
     Dates: start: 20161102
  4. PRENATAL VITAMIN [Concomitant]
     Active Substance: VITAMINS
  5. BARD POWER PORT [Concomitant]
  6. CALCIUM [Concomitant]
     Active Substance: CALCIUM
  7. MAGNESIUM [Concomitant]
     Active Substance: MAGNESIUM
  8. ENTYVIO [Concomitant]
     Active Substance: VEDOLIZUMAB
  9. LIDOCAINE CREAM [Concomitant]
  10. DICYCLOMINE [Concomitant]
     Active Substance: DICYCLOMINE HYDROCHLORIDE
  11. VITAMIN D3 [Concomitant]
     Active Substance: CHOLECALCIFEROL
  12. ZINC. [Concomitant]
     Active Substance: ZINC
  13. TYLENOL [Concomitant]
     Active Substance: ACETAMINOPHEN

REACTIONS (7)
  - Arthralgia [None]
  - Erythema [None]
  - Bone pain [None]
  - Skin disorder [None]
  - Visual impairment [None]
  - Weight increased [None]
  - Fatigue [None]
